FAERS Safety Report 10170540 (Version 1)
Quarter: 2014Q2

REPORT INFORMATION
  Report Type: Spontaneous
  Country: US (occurrence: US)
  Receive Date: 20140513
  Receipt Date: 20140513
  Transmission Date: 20141212
  Serious: No
  Sender: FDA-Public Use
  Company Number: US-SA-2014SA044832

PATIENT
  Age: 52 Year
  Sex: Female

DRUGS (2)
  1. ZALTRAP [Suspect]
     Indication: COLON CANCER
     Route: 042
     Dates: start: 20131119, end: 20131119
  2. ZALTRAP [Suspect]
     Indication: COLON CANCER
     Route: 042

REACTIONS (1)
  - Pyrexia [Not Recovered/Not Resolved]
